FAERS Safety Report 4808293-3 (Version None)
Quarter: 2005Q4

REPORT INFORMATION
  Report Type: 
  Country: None (occurrence: None)
  Receive Date: 20051021
  Receipt Date: 20020130
  Transmission Date: 20060501
  Serious: No
  Sender: FDA-Public Use
  Company Number: EWC020229899

PATIENT
  Age: 32 Year
  Sex: Female

DRUGS (6)
  1. OLANZAPINE [Suspect]
     Indication: BORDERLINE PERSONALITY DISORDER
     Dosage: 15 MG/DAY
     Dates: start: 20010801, end: 20011205
  2. OLANZAPINE [Suspect]
     Indication: DEPRESSION
     Dosage: 15 MG/DAY
     Dates: start: 20010801, end: 20011205
  3. OLANZAPINE [Suspect]
     Indication: PSYCHOTIC DISORDER
     Dosage: 15 MG/DAY
     Dates: start: 20010801, end: 20011205
  4. CITALOPRAM HYDROBROMIDE [Concomitant]
  5. REMERON [Concomitant]
  6. IMOVANE (ZOPLICONE) [Concomitant]

REACTIONS (4)
  - BLOOD PROLACTIN DECREASED [None]
  - GALACTORRHOEA [None]
  - GYNAECOMASTIA [None]
  - MENOMETRORRHAGIA [None]
